FAERS Safety Report 22366502 (Version 1)
Quarter: 2023Q2

REPORT INFORMATION
  Report Type: Spontaneous
  Country: US (occurrence: None)
  Receive Date: 20230524
  Receipt Date: 20230524
  Transmission Date: 20230721
  Serious: No
  Sender: FDA-Public Use
  Company Number: None

PATIENT
  Age: 10 Year
  Sex: Male
  Weight: 27 kg

DRUGS (4)
  1. METHYLPHENIDATE [Suspect]
     Active Substance: METHYLPHENIDATE
     Indication: Attention deficit hyperactivity disorder
     Route: 048
  2. METHYLPHENIDATE [Suspect]
     Active Substance: METHYLPHENIDATE
     Indication: Attention deficit hyperactivity disorder
  3. Actavis [Concomitant]
  4. Daily kids vitamin [Concomitant]

REACTIONS (5)
  - Product substitution issue [None]
  - Therapeutic response changed [None]
  - Product formulation issue [None]
  - Therapeutic product effect decreased [None]
  - Product quality issue [None]

NARRATIVE: CASE EVENT DATE: 20230228
